FAERS Safety Report 8198374-1 (Version None)
Quarter: 2012Q1

REPORT INFORMATION
  Report Type: 
  Country: None (occurrence: None)
  Receive Date: 20120309
  Receipt Date: 20111216
  Transmission Date: 20120608
  Serious: No
  Sender: FDA-Public Use
  Company Number: US-AMGEN-USASP2011067232

PATIENT
  Age: 91 Year
  Sex: Female

DRUGS (9)
  1. PROLIA [Suspect]
     Indication: OSTEOPOROSIS POSTMENOPAUSAL
     Dosage: 60 MG, UNK
     Dates: start: 20101201
  2. LAXATIVE [Concomitant]
  3. CYMBALTA [Concomitant]
  4. OXYBUTYNIN [Concomitant]
  5. OMEPRAZOLE [Concomitant]
  6. WARFARIN SODIUM [Concomitant]
  7. LEVOTHYROXINE SODIUM [Concomitant]
  8. CALCIUM [Concomitant]
  9. ANASTROZOLE [Concomitant]

REACTIONS (1)
  - TOOTH DISORDER [None]
